FAERS Safety Report 8223948-9 (Version None)
Quarter: 2012Q1

REPORT INFORMATION
  Report Type: 
  Country: None (occurrence: None)
  Receive Date: 20120321
  Receipt Date: 20120309
  Transmission Date: 20120608
  Serious: Yes (Other)
  Sender: FDA-Public Use
  Company Number: US-SANOFI-AVENTIS-2012SA016410

PATIENT
  Age: 63 Year
  Sex: Male

DRUGS (1)
  1. APIDRA [Suspect]
     Route: 058

REACTIONS (1)
  - MYOCARDIAL INFARCTION [None]
